FAERS Safety Report 7750167-2 (Version None)
Quarter: 2011Q3

REPORT INFORMATION
  Report Type: 
  Country: None (occurrence: None)
  Receive Date: 20110914
  Receipt Date: 20110914
  Transmission Date: 20111222
  Serious: Yes (Disabling, Other)
  Sender: FDA-Public Use
  Company Number: None

PATIENT
  Age: 30 Year
  Sex: Female
  Weight: 48.08 kg

DRUGS (1)
  1. CLARAVIS [Suspect]
     Indication: ACNE
     Dosage: 40MG
     Route: 048
     Dates: start: 20110530, end: 20110830

REACTIONS (8)
  - CONDITION AGGRAVATED [None]
  - VISION BLURRED [None]
  - DEPRESSION [None]
  - MUSCULAR WEAKNESS [None]
  - PAIN IN EXTREMITY [None]
  - BACK PAIN [None]
  - DIZZINESS [None]
  - ASTHENIA [None]
